FAERS Safety Report 4827921-X (Version None)
Quarter: 2005Q4

REPORT INFORMATION
  Report Type: 
  Country: None (occurrence: None)
  Receive Date: 20051114
  Receipt Date: 20051114
  Transmission Date: 20060501
  Serious: Yes (Death)
  Sender: FDA-Public Use
  Company Number: None

PATIENT
  Age: 25 Week

DRUGS (3)
  1. SODIUM CHLORIDE CONCENTRATED INJ [Suspect]
     Dosage: INJECTABLE
  2. STERILE WATER [Suspect]
     Dosage: INJECTABLE
  3. STERILE WATER [Suspect]
     Dosage: INJECTABLE

REACTIONS (8)
  - BRADYCARDIA NEONATAL [None]
  - DEVICE MALFUNCTION [None]
  - DRUG DISPENSING ERROR [None]
  - HYPERNATRAEMIA [None]
  - IATROGENIC INJURY [None]
  - MEDICATION ERROR [None]
  - NEONATAL HYPOTENSION [None]
  - WRONG DRUG ADMINISTERED [None]
